FAERS Safety Report 6242100-X (Version None)
Quarter: 2009Q2

REPORT INFORMATION
  Report Type: 
  Country: None (occurrence: None)
  Receive Date: 20090624
  Receipt Date: 20090612
  Transmission Date: 20091009
  Serious: Yes (Other)
  Sender: FDA-Public Use
  Company Number: GB-PFIZER INC-2009218756

PATIENT

DRUGS (3)
  1. NICOTINE [Suspect]
     Indication: SMOKING CESSATION THERAPY
     Dosage: 2 SPRAYS IN NOSTRILS EVERY HALF AN HOUR
     Route: 045
     Dates: start: 20081010, end: 20090520
  2. CLOPIXOL (DECANOATE) [Concomitant]
     Indication: MENTAL DISORDER
     Dosage: 200 MG, UNK
     Dates: start: 20080101
  3. SEROQUEL [Concomitant]
     Indication: DEPRESSION
     Dosage: 50 MG, UNK
     Dates: start: 20080101

REACTIONS (7)
  - COUGH [None]
  - DEPENDENCE [None]
  - INCORRECT DRUG ADMINISTRATION DURATION [None]
  - OCULAR HYPERAEMIA [None]
  - RHINORRHOEA [None]
  - SNEEZING [None]
  - VISION BLURRED [None]
